FAERS Safety Report 24165827 (Version 3)
Quarter: 2024Q4

REPORT INFORMATION
  Report Type: Spontaneous
  Country: US (occurrence: US)
  Receive Date: 20240802
  Receipt Date: 20241004
  Transmission Date: 20250114
  Serious: No
  Sender: GLAXOSMITHKLINE
  Company Number: US-GSK-US2024092909

PATIENT
  Age: 56 Year
  Sex: Female
  Weight: 72.5 kg

DRUGS (3)
  1. NUCALA [Suspect]
     Active Substance: MEPOLIZUMAB
     Indication: Product used for unknown indication
     Dosage: UNK
     Dates: start: 20240717
  2. DUPIXENT [Suspect]
     Active Substance: DUPILUMAB
     Indication: Asthma
     Dosage: 300 MG, EVERY OTHER WEEK,300MG/2ML
     Route: 058
  3. DUPIXENT [Suspect]
     Active Substance: DUPILUMAB
     Indication: Nasal polyps

REACTIONS (8)
  - Headache [Unknown]
  - Oropharyngeal pain [Recovered/Resolved]
  - Contusion [Unknown]
  - Illness [Unknown]
  - Fatigue [Unknown]
  - Feeling abnormal [Unknown]
  - Palpitations [Unknown]
  - Somnolence [Unknown]

NARRATIVE: CASE EVENT DATE: 20240717
